FAERS Safety Report 5627135-X (Version None)
Quarter: 2008Q1

REPORT INFORMATION
  Report Type: 
  Country: None (occurrence: None)
  Receive Date: 20080212
  Receipt Date: 20080212
  Transmission Date: 20080703
  Serious: Yes (Life-Threatening, Hospitalization)
  Sender: FDA-Public Use
  Company Number: None

PATIENT
  Sex: Female
  Weight: 63.05 kg

DRUGS (1)
  1. METOCLOPRAMIDE [Suspect]
     Indication: ABDOMINAL PAIN
     Dosage: 5MG QID PRN PO
     Route: 048
     Dates: start: 20050507, end: 20060124

REACTIONS (4)
  - ATHETOSIS [None]
  - CHOREOATHETOSIS [None]
  - GAIT DISTURBANCE [None]
  - TARDIVE DYSKINESIA [None]
